FAERS Safety Report 23561967 (Version 1)
Quarter: 2024Q1

REPORT INFORMATION
  Report Type: Report from Study
  Country: DK (occurrence: DK)
  Receive Date: 20240225
  Receipt Date: 20240225
  Transmission Date: 20240410
  Serious: Yes (Hospitalization, Other)
  Sender: FDA-Public Use
  Company Number: DK-JNJFOC-20240231929

PATIENT

DRUGS (5)
  1. REMICADE [Suspect]
     Active Substance: INFLIXIMAB
     Indication: Crohn^s disease
     Route: 041
  2. REMICADE [Suspect]
     Active Substance: INFLIXIMAB
     Route: 041
  3. REMICADE [Suspect]
     Active Substance: INFLIXIMAB
     Route: 041
  4. REMICADE [Suspect]
     Active Substance: INFLIXIMAB
     Route: 041
  5. METHOTREXATE [Concomitant]
     Active Substance: METHOTREXATE

REACTIONS (22)
  - Cardiac disorder [Unknown]
  - Adverse event [Unknown]
  - Hypoacusis [Unknown]
  - Eye irritation [Unknown]
  - Seasonal allergy [Unknown]
  - Hyperaemia [Unknown]
  - Migraine [Unknown]
  - Fall [Unknown]
  - Chapped lips [Unknown]
  - Tonsillolith [Unknown]
  - Cervical polyp [Unknown]
  - Arthropod bite [Unknown]
  - Ligament sprain [Unknown]
  - Alopecia [Unknown]
  - Fatigue [Unknown]
  - Anaemia [Unknown]
  - Infection [Unknown]
  - Hepatic enzyme increased [Unknown]
  - Back pain [Unknown]
  - Rash [Unknown]
  - Arthralgia [Unknown]
  - Off label use [Unknown]
